FAERS Safety Report 8261884-2 (Version None)
Quarter: 2012Q2

REPORT INFORMATION
  Report Type: 
  Country: None (occurrence: None)
  Receive Date: 20120402
  Receipt Date: 20120323
  Transmission Date: 20120825
  Serious: Yes (Hospitalization, Other)
  Sender: FDA-Public Use
  Company Number: 2012SP016451

PATIENT
  Age: 23 Year
  Sex: Male

DRUGS (3)
  1. LORAZEPAM [Suspect]
     Indication: PRODUCT USED FOR UNKNOWN INDICATION
     Dosage: 1 DF;ONCE;PO
     Route: 048
     Dates: start: 20110811, end: 20110811
  2. REMERON [Suspect]
     Indication: PRODUCT USED FOR UNKNOWN INDICATION
     Dosage: 45 MG;ONCE;PO
     Route: 048
     Dates: start: 20110811, end: 20110811
  3. CITALOPRAM HYDROBROMIDE [Suspect]
     Indication: PRODUCT USED FOR UNKNOWN INDICATION
     Dosage: 20 MG;ONCE;PO
     Route: 048
     Dates: start: 20110811, end: 20110811

REACTIONS (9)
  - POISONING [None]
  - OXYGEN SATURATION DECREASED [None]
  - AGITATION [None]
  - HYPERTENSION [None]
  - SUICIDE ATTEMPT [None]
  - HALLUCINATION [None]
  - TACHYCARDIA [None]
  - MULTIPLE DRUG OVERDOSE INTENTIONAL [None]
  - SOMNOLENCE [None]
